FAERS Safety Report 5895638-9 (Version None)
Quarter: 2008Q3

REPORT INFORMATION
  Report Type: 
  Country: None (occurrence: None)
  Receive Date: 20080924
  Receipt Date: 20080320
  Transmission Date: 20090109
  Serious: Yes (Other)
  Sender: FDA-Public Use
  Company Number: US-ASTRAZENECA-2006UW26359

PATIENT
  Sex: Male
  Weight: 109.1 kg

DRUGS (7)
  1. SEROQUEL [Suspect]
     Indication: SCHIZOPHRENIA
     Route: 048
     Dates: start: 19980201, end: 20060101
  2. SEROQUEL [Suspect]
     Indication: DELUSION
     Route: 048
     Dates: start: 19980201, end: 20060101
  3. SEROQUEL [Suspect]
     Indication: THINKING ABNORMAL
     Route: 048
     Dates: start: 19980201, end: 20060101
  4. SEROQUEL [Suspect]
     Route: 048
     Dates: start: 20050101, end: 20060101
  5. SEROQUEL [Suspect]
     Route: 048
     Dates: start: 20050101, end: 20060101
  6. SEROQUEL [Suspect]
     Route: 048
     Dates: start: 20050101, end: 20060101
  7. RISPERDAL [Concomitant]
     Dates: start: 20050101

REACTIONS (2)
  - DIABETES MELLITUS [None]
  - SUICIDAL IDEATION [None]
